FAERS Safety Report 16173475 (Version 1)
Quarter: 2019Q2

REPORT INFORMATION
  Report Type: Spontaneous
  Country: US (occurrence: US)
  Receive Date: 20190408
  Receipt Date: 20190408
  Transmission Date: 20190711
  Serious: Yes (Other)
  Sender: FDA-Public Use
  Company Number: None

PATIENT
  Age: 71 Year
  Sex: Female
  Weight: 122.85 kg

DRUGS (1)
  1. ZYLOPRIM [Suspect]
     Active Substance: ALLOPURINOL
     Indication: GOUT
     Route: 048
     Dates: start: 20161101, end: 20161101

REACTIONS (8)
  - Paraesthesia oral [None]
  - Arthralgia [None]
  - Vision blurred [None]
  - Fatigue [None]
  - Gait inability [None]
  - Dizziness [None]
  - Decreased appetite [None]
  - Muscular weakness [None]

NARRATIVE: CASE EVENT DATE: 20161101
